FAERS Safety Report 6330282-0 (Version None)
Quarter: 2009Q3

REPORT INFORMATION
  Report Type: 
  Country: None (occurrence: None)
  Receive Date: 20090827
  Receipt Date: 20090706
  Transmission Date: 20100115
  Serious: No
  Sender: FDA-Public Use
  Company Number: US-KINGPHARMUSA00001-K200900802

PATIENT
  Age: 31 Year
  Sex: Female

DRUGS (3)
  1. FLECTOR [Suspect]
     Indication: NECK PAIN
     Dosage: 1 PATCH, UNK
     Route: 061
     Dates: start: 20090603, end: 20090604
  2. SOMA [Concomitant]
     Dosage: UNK
     Route: 048
  3. NAPROXEN [Concomitant]
     Dosage: UNK
     Route: 048

REACTIONS (2)
  - HEADACHE [None]
  - NECK PAIN [None]
